FAERS Safety Report 14148964 (Version 1)
Quarter: 2017Q4

REPORT INFORMATION
  Report Type: Spontaneous
  Country: GB (occurrence: GB)
  Receive Date: 20171101
  Receipt Date: 20171101
  Transmission Date: 20180321
  Serious: Yes (Other)
  Sender: FDA-Public Use
  Company Number: GB-TEVA-819387ACC

PATIENT
  Age: 45 Year
  Sex: Male
  Weight: 103 kg

DRUGS (15)
  1. BISOPROLOL [Concomitant]
     Active Substance: BISOPROLOL
     Dosage: 1 DOSAGE FORMS DAILY;
     Dates: start: 20170215, end: 20170922
  2. INDOMETACIN [Concomitant]
     Active Substance: INDOMETHACIN
     Dosage: 2 DOSAGE FORMS DAILY;
     Dates: start: 20160602, end: 20170922
  3. LANSOPRAZOLE. [Concomitant]
     Active Substance: LANSOPRAZOLE
     Dosage: 1 DOSAGE FORMS DAILY;
     Dates: start: 20170215, end: 20170922
  4. TRAMADOL. [Concomitant]
     Active Substance: TRAMADOL
     Dosage: 3 DOSAGE FORMS DAILY;
     Dates: start: 20140214, end: 20170922
  5. OLANZAPINE. [Concomitant]
     Active Substance: OLANZAPINE
     Dosage: 1 DOSAGE FORMS DAILY;
     Dates: start: 20091223, end: 20170922
  6. RAMIPRIL. [Concomitant]
     Active Substance: RAMIPRIL
     Dosage: 1 DOSAGE FORMS DAILY;
     Dates: start: 20170215, end: 20170922
  7. GABAPENTIN. [Suspect]
     Active Substance: GABAPENTIN
     Dates: start: 20171011
  8. ATORVASTATIN [Concomitant]
     Active Substance: ATORVASTATIN
     Dosage: 2 DOSAGE FORMS DAILY;
     Dates: start: 20161205, end: 20170922
  9. PRIADEL [Concomitant]
     Active Substance: LITHIUM CARBONATE
     Dosage: 2 DOSAGE FORMS DAILY;
     Dates: start: 20100309, end: 20170922
  10. CLOPIDOGREL [Concomitant]
     Active Substance: CLOPIDOGREL BISULFATE
     Dosage: 1 DOSAGE FORMS DAILY;
     Dates: start: 20170215, end: 20170922
  11. AMOXICILLIN. [Concomitant]
     Active Substance: AMOXICILLIN
     Dosage: 3 DOSAGE FORMS DAILY;
     Dates: start: 20170731, end: 20170829
  12. ASPIRIN. [Concomitant]
     Active Substance: ASPIRIN
     Dosage: 1 DOSAGE FORMS DAILY;
     Dates: start: 20161221, end: 20170922
  13. NORTRIPTYLINE [Concomitant]
     Active Substance: NORTRIPTYLINE
     Dosage: 5 DOSAGE FORMS DAILY;
     Dates: start: 20130501, end: 20170922
  14. PROPRANOLOL [Concomitant]
     Active Substance: PROPRANOLOL HYDROCHLORIDE
     Dosage: 1 DOSAGE FORMS DAILY;
     Dates: start: 20161124, end: 20170922
  15. OMEPRAZOLE. [Concomitant]
     Active Substance: OMEPRAZOLE
     Dosage: 1 DOSAGE FORMS DAILY;
     Dates: start: 20150121, end: 20170922

REACTIONS (3)
  - Depression [Recovered/Resolved]
  - Agitated depression [Recovering/Resolving]
  - Suicidal ideation [Unknown]

NARRATIVE: CASE EVENT DATE: 20171011
